FAERS Safety Report 7728627-X (Version None)
Quarter: 2011Q3

REPORT INFORMATION
  Report Type: 
  Country: None (occurrence: None)
  Receive Date: 20110831
  Receipt Date: 20110831
  Transmission Date: 20111222
  Serious: Yes (Hospitalization)
  Sender: FDA-Public Use
  Company Number: None

PATIENT
  Sex: Female

DRUGS (1)
  1. VOTRIENT [Suspect]
     Indication: BASAL CELL CARCINOMA
     Dosage: VOTRIENT 200MG QD PO
     Route: 048
     Dates: start: 20110622, end: 20110722

REACTIONS (2)
  - IMPAIRED HEALING [None]
  - SKIN ULCER [None]
